FAERS Safety Report 6953637-X (Version None)
Quarter: 2010Q3

REPORT INFORMATION
  Report Type: 
  Country: None (occurrence: None)
  Receive Date: 20100829
  Receipt Date: 20100610
  Transmission Date: 20110219
  Serious: No
  Sender: FDA-Public Use
  Company Number: US-ABBOTT-10P-163-0651687-00

PATIENT
  Sex: Male

DRUGS (8)
  1. NIASPAN [Suspect]
     Indication: BLOOD CHOLESTEROL INCREASED
     Dates: start: 20100301, end: 20100401
  2. NIASPAN [Suspect]
     Dates: start: 20100401, end: 20100501
  3. NIASPAN [Suspect]
     Dates: end: 20100518
  4. NIASPAN [Suspect]
     Dates: start: 20100601
  5. NIASPAN [Suspect]
     Dates: start: 20100601, end: 20100601
  6. NIASPAN [Suspect]
     Dates: end: 20100609
  7. PLAVIX [Suspect]
     Indication: STENT PLACEMENT
     Dates: end: 20100518
  8. ASPIRIN [Concomitant]
     Indication: STENT PLACEMENT
     Dates: start: 20100101

REACTIONS (3)
  - ERYTHEMA [None]
  - PRURITUS [None]
  - RASH [None]
